FAERS Safety Report 19381977 (Version 1)
Quarter: 2021Q2

REPORT INFORMATION
  Report Type: Spontaneous
  Country: US (occurrence: US)
  Receive Date: 20210606
  Receipt Date: 20210606
  Transmission Date: 20210717
  Serious: No
  Sender: FDA-Public Use
  Company Number: None

PATIENT
  Age: 36 Year
  Sex: Female
  Weight: 61.65 kg

DRUGS (4)
  1. ADDERALL [Concomitant]
     Active Substance: AMPHETAMINE ASPARTATE\AMPHETAMINE SULFATE\DEXTROAMPHETAMINE SACCHARATE\DEXTROAMPHETAMINE SULFATE
  2. FE ALLEGRA [Concomitant]
  3. SINGULAIR [Concomitant]
     Active Substance: MONTELUKAST SODIUM
  4. FLUOXETINE [Suspect]
     Active Substance: FLUOXETINE HYDROCHLORIDE
     Dosage: QUANTITY:1 CAPSULE(S);?
     Route: 048
     Dates: start: 20210601, end: 20210604

REACTIONS (5)
  - Insomnia [None]
  - Restlessness [None]
  - Recalled product administered [None]
  - Manufacturing issue [None]
  - Anxiety [None]

NARRATIVE: CASE EVENT DATE: 20210601
